FAERS Safety Report 15266922 (Version 2)
Quarter: 2019Q2

REPORT INFORMATION
  Report Type: Spontaneous
  Country: US (occurrence: US)
  Receive Date: 20180810
  Receipt Date: 20190416
  Transmission Date: 20190711
  Serious: No
  Sender: FDA-Public Use
  Company Number: US-BAUSCH-BL-2018-020434

PATIENT
  Age: 55 Year
  Sex: Female
  Weight: 68.1 kg

DRUGS (2)
  1. BEPREVE [Suspect]
     Active Substance: BEPOTASTINE BESILATE
     Indication: EYE ALLERGY
     Dosage: ONE DROP TWICE DAILY IN EACH EYE
     Route: 047
     Dates: start: 20180723, end: 20180725
  2. LOTEMAX [Suspect]
     Active Substance: LOTEPREDNOL ETABONATE
     Indication: HYPERSENSITIVITY
     Route: 065
     Dates: start: 20180723

REACTIONS (4)
  - Product taste abnormal [Unknown]
  - Drug ineffective [Unknown]
  - Abdominal pain upper [Recovered/Resolved]
  - Eye irritation [Recovered/Resolved]

NARRATIVE: CASE EVENT DATE: 201807
